FAERS Safety Report 7785555-1 (Version None)
Quarter: 2011Q3

REPORT INFORMATION
  Report Type: 
  Country: None (occurrence: None)
  Receive Date: 20110929
  Receipt Date: 20110920
  Transmission Date: 20111222
  Serious: Yes (Hospitalization, Other)
  Sender: FDA-Public Use
  Company Number: DK-JNJFOC-20110907827

PATIENT

DRUGS (18)
  1. CYCLOPHOSPHAMIDE [Suspect]
     Indication: B-CELL LYMPHOMA RECURRENT
     Route: 065
     Dates: start: 20060901
  2. ZEVALIN [Suspect]
     Route: 065
     Dates: start: 20060901, end: 20060901
  3. DOXORUBICIN HCL [Suspect]
     Indication: B-CELL LYMPHOMA RECURRENT
     Route: 042
     Dates: start: 20060901
  4. PREDNISONE [Suspect]
     Indication: B-CELL LYMPHOMA RECURRENT
     Route: 065
     Dates: start: 20080115
  5. PREDNISONE [Suspect]
     Route: 065
     Dates: start: 20060901
  6. PREDNISONE [Suspect]
     Route: 065
     Dates: start: 20060215
  7. RITUXIMAB [Suspect]
     Indication: B-CELL LYMPHOMA RECURRENT
     Route: 065
     Dates: start: 20060215
  8. RITUXIMAB [Suspect]
     Route: 065
     Dates: start: 20050110
  9. RITUXIMAB [Suspect]
     Route: 065
     Dates: start: 20060901
  10. RITUXIMAB [Suspect]
     Route: 065
     Dates: start: 20080115
  11. ZEVALIN [Suspect]
     Indication: B-CELL LYMPHOMA RECURRENT
     Route: 065
     Dates: start: 20060215
  12. VINCRISTINE [Suspect]
     Route: 065
     Dates: start: 20060215
  13. CYCLOPHOSPHAMIDE [Suspect]
     Route: 065
     Dates: start: 20060215
  14. YTRACIS [Suspect]
     Indication: B-CELL LYMPHOMA RECURRENT
     Route: 065
     Dates: start: 20060901, end: 20060901
  15. FLUDARABINE PHOSPHATE [Concomitant]
     Indication: B-CELL LYMPHOMA RECURRENT
     Route: 065
     Dates: start: 20050110
  16. CYCLOPHOSPHAMIDE [Suspect]
     Route: 065
     Dates: start: 20050110
  17. VINCRISTINE [Suspect]
     Indication: B-CELL LYMPHOMA RECURRENT
     Route: 065
     Dates: start: 20060901
  18. TREANDA [Concomitant]
     Indication: B-CELL LYMPHOMA RECURRENT
     Route: 065
     Dates: start: 20080115

REACTIONS (1)
  - MYELODYSPLASTIC SYNDROME [None]
